FAERS Safety Report 17859869 (Version 1)
Quarter: 2020Q2

REPORT INFORMATION
  Report Type: Spontaneous
  Country: US (occurrence: US)
  Receive Date: 20200604
  Receipt Date: 20200604
  Transmission Date: 20200714
  Serious: No
  Sender: FDA-Public Use
  Company Number: None

PATIENT
  Age: 72 Year
  Sex: Male
  Weight: 109.8 kg

DRUGS (17)
  1. DICLOFENAC SODIUM. [Concomitant]
     Active Substance: DICLOFENAC SODIUM
  2. TORSEMIDE. [Concomitant]
     Active Substance: TORSEMIDE
  3. MOMETASONE [Concomitant]
     Active Substance: MOMETASONE
  4. BACTRIM [Concomitant]
     Active Substance: SULFAMETHOXAZOLE\TRIMETHOPRIM
  5. EPIPEN [Concomitant]
     Active Substance: EPINEPHRINE
  6. MAGNESIUM [Concomitant]
     Active Substance: MAGNESIUM
  7. COPIKTRA [Suspect]
     Active Substance: DUVELISIB
     Indication: CHRONIC LYMPHOCYTIC LEUKAEMIA
     Route: 048
     Dates: start: 20200512
  8. FOLIC ACID. [Concomitant]
     Active Substance: FOLIC ACID
  9. IBUPROFEN. [Concomitant]
     Active Substance: IBUPROFEN
  10. DOXYCYCLINE. [Concomitant]
     Active Substance: DOXYCYCLINE
  11. THERAWORX [Concomitant]
  12. ALLOPURINOL. [Concomitant]
     Active Substance: ALLOPURINOL
  13. DILTIAZEM CD [Concomitant]
     Active Substance: DILTIAZEM
  14. ASPIRIN. [Concomitant]
     Active Substance: ASPIRIN
  15. METOPROLOL. [Concomitant]
     Active Substance: METOPROLOL
  16. PROCTOSOL HC [Concomitant]
  17. VITAMIN D [Concomitant]
     Active Substance: VITAMIN D NOS

REACTIONS (5)
  - Musculoskeletal pain [None]
  - Dysphagia [None]
  - Fluid retention [None]
  - Constipation [None]
  - Nausea [None]

NARRATIVE: CASE EVENT DATE: 20200604
